FAERS Safety Report 13404064 (Version 7)
Quarter: 2022Q2

REPORT INFORMATION
  Report Type: Report from Study
  Country: PE (occurrence: None)
  Receive Date: 20170405
  Receipt Date: 20220524
  Transmission Date: 20220720
  Serious: Yes (Hospitalization)
  Sender: FDA-Public Use
  Company Number: PE-ROCHE-1913224

PATIENT
  Age: 38 Year
  Sex: Male
  Weight: 92.7 kg

DRUGS (40)
  1. INTERFERON BETA-1A [Suspect]
     Active Substance: INTERFERON BETA-1A
     Indication: Relapsing-remitting multiple sclerosis
     Route: 058
     Dates: start: 20121108, end: 20121203
  2. INTERFERON BETA-1A [Suspect]
     Active Substance: INTERFERON BETA-1A
     Route: 058
     Dates: start: 20140814, end: 20140906
  3. PLACEBO [Suspect]
     Active Substance: UNSPECIFIED INGREDIENT
     Indication: Relapsing-remitting multiple sclerosis
     Dosage: FIRST DOSE ADMINISTERED AS DUAL INFUSIONS ON DAY 1 AND DAY 15 OF FIRST 24-WEEK CYCLE (AS PER PROTOCO
     Route: 042
     Dates: start: 20121108, end: 20121108
  4. OCRELIZUMAB [Suspect]
     Active Substance: OCRELIZUMAB
     Indication: Relapsing-remitting multiple sclerosis
     Dosage: FIRST DOSE ADMINISTERED AS DUAL INFUSIONS ON DAY 1 AND DAY 15 (260 ML) OF FIRST 24-WEEK CYCLE (AS PE
     Route: 042
     Dates: start: 20141106, end: 20141106
  5. OCRELIZUMAB [Suspect]
     Active Substance: OCRELIZUMAB
     Dosage: OLE-WEEK 2
     Route: 042
     Dates: start: 20141120, end: 20141120
  6. OCRELIZUMAB [Suspect]
     Active Substance: OCRELIZUMAB
     Dosage: OLE-WEEK 24
     Route: 042
     Dates: start: 20150427, end: 20150427
  7. OCRELIZUMAB [Suspect]
     Active Substance: OCRELIZUMAB
     Dosage: OLE-WEEK 48
     Route: 042
     Dates: start: 20151009, end: 20151009
  8. OCRELIZUMAB [Suspect]
     Active Substance: OCRELIZUMAB
     Dosage: OLE-WEEK 72
     Route: 042
     Dates: start: 20160328, end: 20160328
  9. OCRELIZUMAB [Suspect]
     Active Substance: OCRELIZUMAB
     Dosage: OLE-WEEK 96
     Route: 042
     Dates: start: 20160908, end: 20160908
  10. OCRELIZUMAB [Suspect]
     Active Substance: OCRELIZUMAB
     Dosage: OLE-WEEK 120
     Route: 042
     Dates: start: 20170223, end: 20170223
  11. OCRELIZUMAB [Suspect]
     Active Substance: OCRELIZUMAB
     Dosage: OLE-WEEK 144
     Route: 042
     Dates: start: 20170809, end: 20170809
  12. OCRELIZUMAB [Suspect]
     Active Substance: OCRELIZUMAB
     Dosage: OLE-WEEK 168
     Route: 042
     Dates: start: 20180125, end: 20180125
  13. OCRELIZUMAB [Suspect]
     Active Substance: OCRELIZUMAB
     Dosage: OLE-WEEK 192
     Route: 042
     Dates: start: 20180712, end: 20180712
  14. OCRELIZUMAB [Suspect]
     Active Substance: OCRELIZUMAB
     Dosage: OLE-WEEK 216
     Route: 042
     Dates: start: 20190107, end: 20190107
  15. OCRELIZUMAB [Suspect]
     Active Substance: OCRELIZUMAB
     Dosage: OLE-WEEK 240
     Route: 042
     Dates: start: 20190614, end: 20190614
  16. OCRELIZUMAB [Suspect]
     Active Substance: OCRELIZUMAB
     Dosage: OLE-WEEK 264
     Route: 042
     Dates: start: 20191129, end: 20191129
  17. OCRELIZUMAB [Suspect]
     Active Substance: OCRELIZUMAB
     Dosage: OLE-WEEK 288
     Route: 042
     Dates: start: 20200727, end: 20200727
  18. OCRELIZUMAB [Suspect]
     Active Substance: OCRELIZUMAB
     Dosage: OLE-WEEK 312
     Route: 042
     Dates: start: 20201230, end: 20201230
  19. OCRELIZUMAB [Suspect]
     Active Substance: OCRELIZUMAB
     Dosage: OLE-WEEK 336
     Route: 042
     Dates: start: 20210603, end: 20210603
  20. OCRELIZUMAB [Suspect]
     Active Substance: OCRELIZUMAB
     Dosage: OLE-WEEK 360
     Route: 042
     Dates: start: 20211222, end: 20211222
  21. CHLORPHENIRAMINE MALEATE [Concomitant]
     Active Substance: CHLORPHENIRAMINE MALEATE
     Indication: Premedication
     Dosage: PRE-INFUSION TREATMENT, AS PER PROTOCOL. SUBSEQUENT DOSES:?WEEK 2: 23/NOV/2012, WEEK 24: 25/APR/2013
     Route: 048
     Dates: start: 20121108
  22. ACETAMINOPHEN [Concomitant]
     Active Substance: ACETAMINOPHEN
     Indication: Premedication
     Dosage: PRE-INFUSION TREATMENT, AS PER PROTOCOL. SUBSEQUENT DOSES:?WEEK 2: 23/NOV/2012, WEEK 24: 25/APR/2013
     Route: 048
     Dates: start: 20121108
  23. ACETAMINOPHEN [Concomitant]
     Active Substance: ACETAMINOPHEN
     Dates: start: 20121228, end: 20121229
  24. ACETAMINOPHEN [Concomitant]
     Active Substance: ACETAMINOPHEN
     Dates: start: 20130425, end: 20140911
  25. ACETAMINOPHEN [Concomitant]
     Active Substance: ACETAMINOPHEN
     Dates: start: 20131022, end: 20131023
  26. METHYLPREDNISOLONE [Concomitant]
     Active Substance: METHYLPREDNISOLONE
     Indication: Premedication
     Dosage: PRIOR TO INFUSION TREATMENT, AS PER PROTOCOL. SUBSEQUENT DOSES:?WEEK 2: 23/NOV/2012, WEEK 24: 25/APR
     Route: 042
  27. GABAPENTIN [Concomitant]
     Active Substance: GABAPENTIN
     Dates: start: 201201, end: 20140616
  28. GABAPENTIN [Concomitant]
     Active Substance: GABAPENTIN
     Dates: start: 20140617, end: 20141106
  29. GABAPENTIN [Concomitant]
     Active Substance: GABAPENTIN
     Dates: start: 20141107, end: 20150127
  30. GABAPENTIN [Concomitant]
     Active Substance: GABAPENTIN
     Dates: start: 20150128
  31. GABAPENTIN [Concomitant]
     Active Substance: GABAPENTIN
     Dates: start: 20170330
  32. ELCAL-D FORTE [Concomitant]
     Dates: start: 20121129, end: 20131003
  33. ELCAL-D FORTE [Concomitant]
     Dates: start: 20131004, end: 20140616
  34. ELCAL-D FORTE [Concomitant]
     Dates: start: 20140617
  35. CALCIUM PANTOTHENATE\CYANOCOBALAMIN\NIACINAMIDE\PYRIDOXINE HYDROCHLORI [Concomitant]
     Active Substance: CALCIUM PANTOTHENATE\CYANOCOBALAMIN\NIACINAMIDE\PYRIDOXINE HYDROCHLORIDE\RIBOFLAVIN\THIAMINE MONONIT
     Dates: start: 20121231
  36. FLUOXETINE [Concomitant]
     Active Substance: FLUOXETINE HYDROCHLORIDE
     Dates: start: 20130105
  37. TAMSULOSIN [Concomitant]
     Active Substance: TAMSULOSIN
     Indication: Micturition urgency
     Dates: start: 20150128
  38. AZITHROMYCIN [Concomitant]
     Active Substance: AZITHROMYCIN
     Dates: start: 201703, end: 201703
  39. ACETYLCYSTEINE [Concomitant]
     Active Substance: ACETYLCYSTEINE
     Dates: start: 20170330, end: 20170429
  40. CEFTRIAXONE [Concomitant]
     Active Substance: CEFTRIAXONE
     Dates: start: 201703, end: 201703

REACTIONS (1)
  - Pneumonia bacterial [Recovered/Resolved]

NARRATIVE: CASE EVENT DATE: 20170318
